FAERS Safety Report 18569552 (Version 1)
Quarter: 2020Q4

REPORT INFORMATION
  Report Type: Spontaneous
  Country: CN (occurrence: CN)
  Receive Date: 20201202
  Receipt Date: 20201202
  Transmission Date: 20210114
  Serious: Yes (Other)
  Sender: FDA-Public Use
  Company Number: CN-PFIZER INC-2020471825

PATIENT
  Age: 24 Year
  Sex: Female
  Weight: 49 kg

DRUGS (5)
  1. ACTINOMYCIN D [Suspect]
     Active Substance: DACTINOMYCIN
     Indication: CHEMOTHERAPY
     Dosage: 0.4 MG, 1X/DAY
     Route: 041
     Dates: start: 20201103, end: 20201104
  2. ETOPOSIDE. [Concomitant]
     Active Substance: ETOPOSIDE
     Indication: CHEMOTHERAPY
     Dosage: 147 MG, 1X/DAY
     Route: 041
     Dates: start: 20201103, end: 20201104
  3. CALCIUM FOLINATE [Concomitant]
     Active Substance: LEUCOVORIN CALCIUM
     Indication: DETOXIFICATION
     Dosage: 15 MG, 3X/DAY
     Route: 041
     Dates: start: 20201104, end: 20201106
  4. OU SAI [Concomitant]
     Indication: VOMITING
     Dosage: 0.25 MG, 1X/DAY
     Route: 041
     Dates: start: 20201103, end: 20201103
  5. METHOTREXATE. [Suspect]
     Active Substance: METHOTREXATE
     Indication: CHEMOTHERAPY
     Dosage: 147 MG, 1X/DAY
     Route: 041
     Dates: start: 20201103, end: 20201103

REACTIONS (5)
  - Feeding disorder [Recovering/Resolving]
  - Vomiting [Recovering/Resolving]
  - Alopecia [Recovering/Resolving]
  - Myelosuppression [Recovering/Resolving]
  - Nausea [Recovering/Resolving]

NARRATIVE: CASE EVENT DATE: 20201104
